FAERS Safety Report 8916105 (Version 1)
Quarter: 2012Q4

REPORT INFORMATION
  Report Type: 
  Country: US (occurrence: US)
  Receive Date: 20121120
  Receipt Date: 20121120
  Transmission Date: 20130627
  Serious: Yes (Life-Threatening, Other)
  Sender: FDA-Public Use
  Company Number: US-ELI_LILLY_AND_COMPANY-US201211005227

PATIENT
  Age: 72 Year
  Sex: Female

DRUGS (1)
  1. EFFIENT [Suspect]
     Indication: STENT PLACEMENT
     Dosage: 60 mg, single
     Route: 048
     Dates: start: 20121114, end: 20121114

REACTIONS (2)
  - Retroperitoneal haemorrhage [Not Recovered/Not Resolved]
  - Post procedural complication [Unknown]
